FAERS Safety Report 23028612 (Version 1)
Quarter: 2023Q4

REPORT INFORMATION
  Report Type: Spontaneous
  Country: US (occurrence: US)
  Receive Date: 20231004
  Receipt Date: 20231004
  Transmission Date: 20240110
  Serious: No
  Sender: FDA-Public Use
  Company Number: US-BAXTER-2023BAX032300

PATIENT
  Age: 35 Year
  Sex: Female

DRUGS (1)
  1. MYXREDLIN [Suspect]
     Active Substance: INSULIN HUMAN
     Indication: Blood glucose increased
     Dosage: UNK
     Route: 041
     Dates: start: 20230927, end: 20230927

REACTIONS (2)
  - Drug hypersensitivity [Unknown]
  - Erythema [Recovering/Resolving]

NARRATIVE: CASE EVENT DATE: 20230927
